FAERS Safety Report 5085247-6 (Version None)
Quarter: 2006Q3

REPORT INFORMATION
  Report Type: 
  Country: None (occurrence: None)
  Receive Date: 20060731
  Receipt Date: 20050801
  Transmission Date: 20061208
  Serious: Yes (Other)
  Sender: FDA-Public Use
  Company Number: 200511138BWH

PATIENT
  Sex: Male

DRUGS (2)
  1. AVELOX [Suspect]
     Indication: SKIN INFECTION
     Dosage: ORAL
     Route: 048
  2. MULTI-VITAMIN [Concomitant]

REACTIONS (2)
  - CLOSTRIDIUM COLITIS [None]
  - DIARRHOEA HAEMORRHAGIC [None]
